FAERS Safety Report 12897410 (Version 1)
Quarter: 2016Q4

REPORT INFORMATION
  Report Type: Spontaneous
  Country: US (occurrence: US)
  Receive Date: 20161031
  Receipt Date: 20161031
  Transmission Date: 20170207
  Serious: No
  Sender: FDA-Public Use
  Company Number: US-JNJFOC-20160906633

PATIENT
  Age: 64 Year
  Sex: Female
  Weight: 90.72 kg

DRUGS (1)
  1. SIMPONI [Suspect]
     Active Substance: GOLIMUMAB
     Indication: PRODUCT USED FOR UNKNOWN INDICATION
     Route: 058

REACTIONS (2)
  - Accidental exposure to product [Unknown]
  - Product leakage [Unknown]

NARRATIVE: CASE EVENT DATE: 20160906
